FAERS Safety Report 22154290 (Version 1)
Quarter: 2023Q1

REPORT INFORMATION
  Report Type: Spontaneous
  Country: US (occurrence: US)
  Receive Date: 20230330
  Receipt Date: 20230330
  Transmission Date: 20230417
  Serious: No
  Sender: FDA-Public Use
  Company Number: US-Accord-287402

PATIENT
  Sex: Female

DRUGS (1)
  1. TACROLIMUS [Suspect]
     Active Substance: TACROLIMUS
     Indication: Product used for unknown indication
     Dosage: APPLY TO THE EFFECTED AREA TWICE DAILY?UNTIL APPROVED THEN EVERY OTHER DAY?AS MAINTENANCE
     Dates: start: 202211

REACTIONS (4)
  - Erythema [Unknown]
  - Skin irritation [Unknown]
  - Skin swelling [Unknown]
  - Product quality issue [Unknown]
